FAERS Safety Report 9849802 (Version 1)
Quarter: 2013Q4

REPORT INFORMATION
  Report Type: Spontaneous
  Country: US (occurrence: None)
  Receive Date: 20131226
  Receipt Date: 20131226
  Transmission Date: 20140711
  Serious: Yes (Other)
  Sender: FDA-Public Use
  Company Number: PHEH2012US019465

PATIENT
  Sex: Male

DRUGS (1)
  1. AFINITOR (RAD) UNKNOWN [Suspect]
     Indication: MALIGNANT URINARY TRACT NEOPLASM
     Dosage: UNK
     Dates: end: 201209

REACTIONS (1)
  - Haemorrhage [None]
